FAERS Safety Report 10646078 (Version 1)
Quarter: 2014Q4

REPORT INFORMATION
  Report Type: Other
  Country: DE (occurrence: DE)
  Receive Date: 20141211
  Receipt Date: 20141211
  Transmission Date: 20150529
  Serious: Yes (Other)
  Sender: FDA-Public Use
  Company Number: DE-MYLANLABS-2014M1012439

PATIENT

DRUGS (2)
  1. TOPIRAMATE. [Suspect]
     Active Substance: TOPIRAMATE
     Indication: EPILEPSY
     Dosage: 200 [MG/D (100-0-100) ]
     Route: 064
     Dates: start: 20130417, end: 20131229
  2. TEGRETAL 400 RETARD [Suspect]
     Active Substance: CARBAMAZEPINE
     Indication: EPILEPSY
     Dosage: 1000 [MG/D ]/ 400-0-600 MG/D
     Route: 064
     Dates: start: 20130417, end: 20131229

REACTIONS (11)
  - Neonatal cholestasis [Recovered/Resolved]
  - Petechiae [Recovered/Resolved]
  - Agitation neonatal [Recovered/Resolved]
  - Feeding disorder neonatal [Recovered/Resolved]
  - Respiratory disorder neonatal [Recovered/Resolved]
  - Congenital choroid plexus cyst [Unknown]
  - Temperature regulation disorder [Recovered/Resolved]
  - Apnoea neonatal [Recovered/Resolved]
  - Atrial septal defect [Unknown]
  - Hypertonia neonatal [Recovered/Resolved]
  - Exposure during pregnancy [Unknown]

NARRATIVE: CASE EVENT DATE: 20131229
